FAERS Safety Report 7485036-9 (Version None)
Quarter: 2011Q2

REPORT INFORMATION
  Report Type: 
  Country: None (occurrence: None)
  Receive Date: 20110517
  Receipt Date: 20101021
  Transmission Date: 20111010
  Serious: No
  Sender: FDA-Public Use
  Company Number: US-BAYER-201022838BCC

PATIENT
  Age: 76 Year
  Sex: Female
  Weight: 72.727 kg

DRUGS (3)
  1. ATENOLOL [Concomitant]
  2. ISOSORBIDE [ISOSORBIDE] [Concomitant]
  3. NAPROXEN (ALEVE) [Suspect]
     Dosage: 220 MG, ONCE
     Route: 048
     Dates: start: 20101018

REACTIONS (1)
  - INSOMNIA [None]
